FAERS Safety Report 22051592 (Version 2)
Quarter: 2023Q2

REPORT INFORMATION
  Report Type: Report from Study
  Country: US (occurrence: US)
  Receive Date: 20230301
  Receipt Date: 20230411
  Transmission Date: 20230722
  Serious: No
  Sender: FDA-Public Use
  Company Number: US-AMGEN-USASL2023017545

PATIENT
  Age: 82 Year
  Sex: Female
  Weight: 40.816 kg

DRUGS (1)
  1. REPATHA [Suspect]
     Active Substance: EVOLOCUMAB
     Indication: Product used for unknown indication
     Dosage: 140 MILLIGRAM, Q2WK
     Route: 065
     Dates: start: 2023

REACTIONS (8)
  - Rhinorrhoea [Unknown]
  - Erythema [Unknown]
  - Injection site haemorrhage [Unknown]
  - Rash [Unknown]
  - Rash macular [Unknown]
  - Arthralgia [Unknown]
  - Back pain [Unknown]
  - Depression [Unknown]
